FAERS Safety Report 9665046 (Version 1)
Quarter: 2013Q4

REPORT INFORMATION
  Report Type: Spontaneous
  Country: IN (occurrence: IN)
  Receive Date: 20131101
  Receipt Date: 20131101
  Transmission Date: 20140711
  Serious: Yes (Death, Other)
  Sender: FDA-Public Use
  Company Number: PHHY2013IN121402

PATIENT
  Sex: Male

DRUGS (1)
  1. PIOGLITAZONE [Suspect]
     Indication: TYPE 2 DIABETES MELLITUS

REACTIONS (5)
  - Death [Fatal]
  - Bladder cancer [Unknown]
  - Metastatic carcinoma of the bladder [Unknown]
  - Metastases to lung [Unknown]
  - Metastases to liver [Unknown]
